FAERS Safety Report 20764447 (Version 1)
Quarter: 2022Q2

REPORT INFORMATION
  Report Type: Spontaneous
  Country: FR (occurrence: FR)
  Receive Date: 20220428
  Receipt Date: 20220428
  Transmission Date: 20220721
  Serious: Yes (Other)
  Sender: FDA-Public Use
  Company Number: FR-AMGEN-FRASP2022070659

PATIENT

DRUGS (1)
  1. ADALIMUMAB [Suspect]
     Active Substance: ADALIMUMAB
     Indication: Psoriasis
     Dosage: UNK
     Route: 065

REACTIONS (6)
  - Acute kidney injury [Recovering/Resolving]
  - Therapeutic product effect incomplete [Unknown]
  - Urticaria [Recovering/Resolving]
  - Psoriasis [Unknown]
  - Drug ineffective [Unknown]
  - Off label use [Unknown]
